FAERS Safety Report 19813770 (Version 1)
Quarter: 2021Q3

REPORT INFORMATION
  Report Type: Spontaneous
  Country: US (occurrence: US)
  Receive Date: 20210910
  Receipt Date: 20210910
  Transmission Date: 20211014
  Serious: Yes (Other)
  Sender: FDA-Public Use
  Company Number: US-ELTAMD-20210801929

PATIENT

DRUGS (1)
  1. ELTAMD UV CLEAR SPF46 [Suspect]
     Active Substance: OCTINOXATE\ZINC OXIDE
     Dosage: UNKNOWN DOSE

REACTIONS (5)
  - Skin burning sensation [Recovering/Resolving]
  - Swelling [Recovering/Resolving]
  - Skin reaction [Recovering/Resolving]
  - Chemical burn of skin [Recovering/Resolving]
  - Papule [Recovering/Resolving]
